FAERS Safety Report 5510183-8 (Version None)
Quarter: 2007Q4

REPORT INFORMATION
  Report Type: 
  Country: None (occurrence: None)
  Receive Date: 20071108
  Receipt Date: 20071031
  Transmission Date: 20080405
  Serious: Yes (Death)
  Sender: FDA-Public Use
  Company Number: IT-ROCHE-522824

PATIENT
  Age: 53 Year
  Sex: Female
  Weight: 48 kg

DRUGS (1)
  1. TORADOL [Suspect]
     Indication: DRUG USE FOR UNKNOWN INDICATION
     Dosage: A SYRINGE AND 3 EMPTY 30MG VIALS OF KETOROLAC WERE FOUND NEAR THE BODY AND THERE WAS A FRESH NEEDLE+
     Route: 042

REACTIONS (2)
  - ANAPHYLACTIC SHOCK [None]
  - COMPLETED SUICIDE [None]
